FAERS Safety Report 6902930-5 (Version None)
Quarter: 2010Q3

REPORT INFORMATION
  Report Type: 
  Country: None (occurrence: None)
  Receive Date: 20100803
  Receipt Date: 20080617
  Transmission Date: 20110219
  Serious: No
  Sender: FDA-Public Use
  Company Number: US-PFIZER INC-2008043996

PATIENT
  Sex: Female
  Weight: 77.2 kg

DRUGS (5)
  1. LYRICA [Suspect]
     Indication: FIBROMYALGIA
     Route: 048
     Dates: start: 20080405, end: 20080417
  2. ZOLOFT [Concomitant]
  3. NEXIUM [Concomitant]
  4. SOMA [Concomitant]
  5. VICODIN [Concomitant]

REACTIONS (9)
  - ABNORMAL BEHAVIOUR [None]
  - ALCOHOL USE [None]
  - ANXIETY [None]
  - COGNITIVE DISORDER [None]
  - DYSPNOEA [None]
  - INSOMNIA [None]
  - IRRITABILITY [None]
  - RESTLESSNESS [None]
  - SLEEP PHASE RHYTHM DISTURBANCE [None]
